FAERS Safety Report 8250038-1 (Version None)
Quarter: 2012Q2

REPORT INFORMATION
  Report Type: 
  Country: None (occurrence: None)
  Receive Date: 20120402
  Receipt Date: 20120323
  Transmission Date: 20120825
  Serious: Yes (Hospitalization)
  Sender: FDA-Public Use
  Company Number: US-ELI_LILLY_AND_COMPANY-US201112000729

PATIENT
  Sex: Female

DRUGS (8)
  1. VITAMIN D [Concomitant]
     Dosage: 50000 UNK, UNK
     Route: 065
  2. FORTEO [Suspect]
     Indication: OSTEOPOROSIS
     Dosage: 20 UG, QD
  3. CITALOPRAM HYDROBROMIDE [Concomitant]
     Dosage: 20 MG, QD
     Route: 065
  4. OMEPRAZOLE [Concomitant]
     Dosage: 20 MG, QD
     Route: 065
  5. IBUPROFEN [Concomitant]
     Dosage: 800 MG, QD
     Route: 065
  6. METOPROLOL SUCCINATE [Concomitant]
     Dosage: 50 MG, QD
     Route: 065
  7. FORTEO [Suspect]
     Dosage: 20 UG, QD
  8. METOPROLOL SUCCINATE [Concomitant]
     Dosage: UNK, UNKNOWN
     Route: 065

REACTIONS (6)
  - IRON DEFICIENCY ANAEMIA [None]
  - STRESS [None]
  - DYSPHONIA [None]
  - FALL [None]
  - BRONCHITIS [None]
  - PNEUMONIA [None]
